FAERS Safety Report 20038637 (Version 1)
Quarter: 2021Q4

REPORT INFORMATION
  Report Type: Spontaneous
  Country: NL (occurrence: NL)
  Receive Date: 20211105
  Receipt Date: 20211105
  Transmission Date: 20220303
  Serious: Yes (Hospitalization)
  Sender: FDA-Public Use
  Company Number: None

PATIENT
  Age: 38 Year
  Sex: Male
  Weight: 73 kg

DRUGS (7)
  1. AMOXICILLIN [Suspect]
     Active Substance: AMOXICILLIN
     Indication: Pneumonia
     Dosage: 4 DOSAGE FORMS DAILY;
     Dates: start: 20211018, end: 20211018
  2. DALTEPARINE / Brand name not specified [Concomitant]
     Dosage: INJECTION FLUID, 25,000 IU/ML (UNITS PER MILLILITER),THERAPY START DATE :ASKU, THERAPY END DATE: ASK
  3. HYDROXYCHLOROQUINE  / Brand name not specified [Concomitant]
     Dosage: THERAPY START DATE :ASKU, THERAPY END DATE: ASK
  4. LISINOPRIL  / Brand name not specified [Concomitant]
     Dosage: THERAPY START DATE :ASKU, THERAPY END DATE: ASK 5 MG (MILLIGRAM)
  5. ITRACONAZOL/ Brand name not specifiedI [Concomitant]
     Dosage: 100 MG (MILLIGRAM),THERAPY START DATE :ASKU, THERAPY END DATE: ASK
  6. INSULINE ASPART  / FIASP [Concomitant]
     Dosage: INJECTION FLUID, 100 UNITS/ML (UNITS PER MILLILITER),PENFILL INJVLST 100E/ML CARTRIDGE 3ML,THERAPY S
  7. LEVOTHYROXINE  / Brand name not specified [Concomitant]
     Dosage: THERAPY START DATE :ASKU, THERAPY END DATE: ASKU, 150 MCG

REACTIONS (2)
  - Paraesthesia [Recovering/Resolving]
  - Paraesthesia oral [Recovered/Resolved]

NARRATIVE: CASE EVENT DATE: 20211018
